FAERS Safety Report 8287013-7 (Version None)
Quarter: 2012Q2

REPORT INFORMATION
  Report Type: 
  Country: None (occurrence: None)
  Receive Date: 20120416
  Receipt Date: 20120406
  Transmission Date: 20120825
  Serious: Yes (Other)
  Sender: FDA-Public Use
  Company Number: US-ASTRAZENECA-2012SE16791

PATIENT
  Age: 56 Year
  Sex: Male

DRUGS (8)
  1. BUDESONIDE [Suspect]
     Indication: CROHN'S DISEASE
     Route: 048
  2. PERCOCET [Concomitant]
     Indication: ABDOMINAL PAIN
  3. ASPIRIN [Concomitant]
  4. CALCIUM CARBONATE [Concomitant]
     Dosage: HALF A DOZEN OR MORE TUMS EACH AND EVERY DAY
     Route: 048
  5. PERCOCET [Concomitant]
     Indication: BACK PAIN
  6. OMEPRAZOLE [Suspect]
     Route: 048
  7. NEXIUM [Suspect]
     Route: 048
  8. NARCOTIC OXYCODONE [Concomitant]

REACTIONS (12)
  - THYROID DISORDER [None]
  - BACK PAIN [None]
  - HEADACHE [None]
  - HYPERTENSION [None]
  - DYSPEPSIA [None]
  - MALAISE [None]
  - CORONARY ARTERY DISEASE [None]
  - INTERVERTEBRAL DISC COMPRESSION [None]
  - OFF LABEL USE [None]
  - CROHN'S DISEASE [None]
  - DEPRESSION [None]
  - DRUG INEFFECTIVE [None]
